FAERS Safety Report 7517974-2 (Version None)
Quarter: 2011Q2

REPORT INFORMATION
  Report Type: 
  Country: None (occurrence: None)
  Receive Date: 20110523
  Receipt Date: 20110516
  Transmission Date: 20111010
  Serious: Yes (Other)
  Sender: FDA-Public Use
  Company Number: 921511

PATIENT
  Age: 59 Year
  Sex: Female

DRUGS (4)
  1. HYDROMORPHONE HCL [Suspect]
     Indication: PRODUCT USED FOR UNKNOWN INDICATION
     Dosage: 1 MG, INTRAMUSCULAR
     Route: 030
  2. MEPERIDINE HCL [Suspect]
     Indication: PRODUCT USED FOR UNKNOWN INDICATION
     Dosage: 50 MG
  3. PROMETHAZINE HYDROCHLORIDE [Suspect]
     Indication: PRODUCT USED FOR UNKNOWN INDICATION
     Dosage: 25 MG INTRAVENOUS (NOT OTHERWISE SPECIFIED)
     Route: 042
  4. (OXYGEN) [Concomitant]

REACTIONS (11)
  - SOMNOLENCE [None]
  - PO2 DECREASED [None]
  - ATELECTASIS [None]
  - RESPIRATORY FAILURE [None]
  - PICKWICKIAN SYNDROME [None]
  - RESPIRATORY RATE INCREASED [None]
  - PCO2 INCREASED [None]
  - RESPIRATORY ACIDOSIS [None]
  - METABOLIC ALKALOSIS [None]
  - BLOOD PRESSURE SYSTOLIC INCREASED [None]
  - BLOOD PH DECREASED [None]
